FAERS Safety Report 25522976 (Version 2)
Quarter: 2025Q3

REPORT INFORMATION
  Report Type: Report from Study
  Country: US (occurrence: US)
  Receive Date: 20250707
  Receipt Date: 20250810
  Transmission Date: 20251020
  Serious: Yes (Other)
  Sender: ALEXION PHARMACEUTICALS
  Company Number: US-AstraZeneca-CH-00902171A

PATIENT
  Sex: Male

DRUGS (5)
  1. OSIMERTINIB [Suspect]
     Active Substance: OSIMERTINIB
     Indication: Lung carcinoma cell type unspecified stage 0
  2. OSIMERTINIB [Suspect]
     Active Substance: OSIMERTINIB
     Indication: Metastases to central nervous system
  3. OSIMERTINIB [Suspect]
     Active Substance: OSIMERTINIB
     Indication: Metastases to bone
  4. ELIQUIS [Concomitant]
     Active Substance: APIXABAN
     Indication: Pulmonary embolism
     Route: 065
  5. ELIQUIS [Concomitant]
     Active Substance: APIXABAN
     Indication: Thrombosis

REACTIONS (7)
  - Sensitive skin [Unknown]
  - Nail cuticle fissure [Unknown]
  - Nail discolouration [Unknown]
  - Rash [Unknown]
  - Pulmonary embolism [Unknown]
  - Thrombosis [Unknown]
  - Oedema peripheral [Unknown]
